FAERS Safety Report 7617260-6 (Version None)
Quarter: 2011Q3

REPORT INFORMATION
  Report Type: 
  Country: None (occurrence: None)
  Receive Date: 20110718
  Receipt Date: 20110707
  Transmission Date: 20111222
  Serious: No
  Sender: FDA-Public Use
  Company Number: US-JNJFOC-20110704012

PATIENT
  Age: 52 Year
  Sex: Female
  Weight: 79.38 kg

DRUGS (5)
  1. INVEGA SUSTENNA [Suspect]
     Indication: PRODUCT USED FOR UNKNOWN INDICATION
     Route: 030
  2. ATENOLOL [Concomitant]
     Route: 048
  3. LIPITOR [Concomitant]
     Route: 048
  4. WELLBUTRIN [Concomitant]
     Route: 048
  5. CYMBALTA [Concomitant]
     Route: 048

REACTIONS (2)
  - ACCIDENTAL EXPOSURE [None]
  - DEVICE MALFUNCTION [None]
